FAERS Safety Report 18899656 (Version 1)
Quarter: 2021Q1

REPORT INFORMATION
  Report Type: Report from Study
  Country: US (occurrence: US)
  Receive Date: 20210216
  Receipt Date: 20210216
  Transmission Date: 20210420
  Serious: Yes (Hospitalization)
  Sender: FDA-Public Use
  Company Number: US-BIOVITRUM-2020US4933

PATIENT
  Age: 90 Year
  Sex: Male

DRUGS (2)
  1. KINERET [Suspect]
     Active Substance: ANAKINRA
     Route: 058
     Dates: start: 20201001
  2. KINERET [Suspect]
     Active Substance: ANAKINRA
     Indication: CHRONIC KIDNEY DISEASE
     Route: 058
     Dates: start: 20191102

REACTIONS (5)
  - Off label use [Not Recovered/Not Resolved]
  - COVID-19 [Unknown]
  - Gait disturbance [Unknown]
  - Limb injury [Unknown]
  - Musculoskeletal discomfort [Unknown]

NARRATIVE: CASE EVENT DATE: 20191102
